FAERS Safety Report 12894529 (Version 6)
Quarter: 2018Q1

REPORT INFORMATION
  Report Type: Report from Study
  Country: None (occurrence: CZ)
  Receive Date: 20161028
  Receipt Date: 20180110
  Transmission Date: 20180508
  Serious: Yes (Hospitalization)
  Sender: FDA-Public Use
  Company Number: CZ-ABBVIE-16P-217-1760668-00

PATIENT
  Age: 68 Year
  Sex: Male
  Weight: 78 kg

DRUGS (54)
  1. DOXORUBICIN [Suspect]
     Active Substance: DOXORUBICIN
     Indication: B-CELL LYMPHOMA
     Dosage: MOST RECENT DOSE(98 MG) PRIOR TO AE ONSET WAS ON 08-OCT-2016 AT 02:15
     Route: 042
     Dates: start: 20161008
  2. VALSARTAN/HYDROCHLOROTHIAZIDE AHCL [Concomitant]
     Dates: start: 20161014, end: 20161020
  3. FUROSEMIDUM [Concomitant]
     Active Substance: FUROSEMIDE
     Dates: start: 20161023, end: 20161025
  4. BISULEPIN HYDROCHLORIDE [Concomitant]
     Active Substance: BISULEPIN HYDROCHLORIDE
     Dates: start: 20161007, end: 20161007
  5. FILGRASTIM [Concomitant]
     Active Substance: FILGRASTIM
     Dates: start: 20161218
  6. METOCLOPRAMIDI HYDROCHLORIDUM [Concomitant]
     Indication: NAUSEA
     Dates: start: 20161004, end: 20161004
  7. KETOTIFEN FUMARATE. [Concomitant]
     Active Substance: KETOTIFEN FUMARATE
     Indication: ASTHMA
     Dates: start: 2010, end: 20161118
  8. VALSARTAN/HYDROCHLOROTHIAZIDE AHCL [Concomitant]
     Indication: HYPERTENSION
     Dates: end: 20161004
  9. NADROPARINUM CALCICUM [Concomitant]
     Indication: THROMBOSIS PROPHYLAXIS
     Dates: start: 20161004, end: 20161011
  10. BISULEPIN HYDROCHLORIDE [Concomitant]
     Active Substance: BISULEPIN HYDROCHLORIDE
     Indication: PREMEDICATION
     Dates: start: 20161010, end: 20161010
  11. BISULEPIN HYDROCHLORIDE [Concomitant]
     Active Substance: BISULEPIN HYDROCHLORIDE
     Indication: INFUSION RELATED REACTION
     Dates: start: 20161027, end: 20161027
  12. FILGRASTIM [Concomitant]
     Active Substance: FILGRASTIM
     Dates: start: 20161027, end: 20161030
  13. LIDOCAINE/PEPPERMINT OIL/MAALOX [Concomitant]
     Indication: MUCOSAL INFLAMMATION
     Dates: start: 20161018, end: 20161022
  14. THIETHYLPERAZINE MALEATE [Concomitant]
     Active Substance: THIETHYLPERAZINE MALEATE
     Indication: NAUSEA
     Dates: start: 20161018, end: 20161021
  15. RABEPRAZOLUM NATRICUM [Concomitant]
     Indication: PROPHYLAXIS
     Dates: start: 20161003
  16. CEFEPIME HYDROCHLORIDE. [Concomitant]
     Active Substance: CEFEPIME HYDROCHLORIDE
     Indication: PROPHYLAXIS
     Dates: start: 20161005, end: 20161005
  17. AMLODIPINUM [Concomitant]
     Indication: HYPERTENSION
     Dates: start: 20161011, end: 20161013
  18. AMLODIPINUM [Concomitant]
     Dates: start: 20161022, end: 20161031
  19. PARACETAMOLUM [Concomitant]
     Active Substance: ACETAMINOPHEN
     Indication: PREMEDICATION
     Dates: start: 20161027, end: 20161027
  20. ALLOPURINOL. [Concomitant]
     Active Substance: ALLOPURINOL
     Indication: PROPHYLAXIS
     Dates: start: 20161004, end: 20161020
  21. VINCRISTINE [Suspect]
     Active Substance: VINCRISTINE
     Indication: B-CELL LYMPHOMA
     Dosage: MOST RECENT DOSE(2 MG) PRIOR TO AE ONSET WAS ON 08-OCT-2016 AT 02:55
     Route: 042
     Dates: start: 20161008
  22. BUDESONIDUM [Concomitant]
     Active Substance: BUDESONIDE
     Indication: ASTHMA
     Dates: end: 20161129
  23. PREDNISONUM [Concomitant]
     Active Substance: PREDNISONE
     Indication: PREMEDICATION
     Dates: start: 20161005, end: 20161006
  24. CEFTRIAXONE DISODIUM [Concomitant]
     Active Substance: CEFTRIAXONE
     Indication: INFECTION PROPHYLAXIS
     Dates: start: 20161005, end: 20161013
  25. FILGRASTIM [Concomitant]
     Active Substance: FILGRASTIM
     Indication: PROPHYLAXIS
     Dates: start: 20161013, end: 20161013
  26. METAMIZOLUM NATRICUM [Concomitant]
     Indication: PYREXIA
     Dates: start: 20161023
  27. ACICLOVIR [Concomitant]
     Active Substance: ACYCLOVIR
     Indication: INFECTION PROPHYLAXIS
     Dates: start: 20161014, end: 20161020
  28. RITUXIMAB. [Suspect]
     Active Substance: RITUXIMAB
     Indication: B-CELL LYMPHOMA
     Dosage: MOST RECENT DOSE(735 MG) PRIOR TO AE ONSET WAS ON 07-OCT-2016 AT 17:30
     Route: 042
     Dates: start: 20161007
  29. SALBUTAMOLI SULFAS [Concomitant]
     Indication: ASTHMA
     Dates: start: 2010
  30. GRANISETRON [Concomitant]
     Active Substance: GRANISETRON
     Dates: start: 20161027, end: 20161027
  31. METHOTREXATUM [Concomitant]
     Active Substance: METHOTREXATE
     Indication: PROPHYLAXIS
     Dates: start: 20161027, end: 20161027
  32. CALCIUM POLYSTYRENE SULFONATE [Concomitant]
     Active Substance: CALCIUM POLYSTYRENE SULFONATE
     Indication: PROPHYLAXIS
     Dates: start: 20161004, end: 20161006
  33. SALBUTAMOLI SULFAS [Concomitant]
     Indication: COUGH
     Dates: start: 201612
  34. VENETOCLAX. [Suspect]
     Active Substance: VENETOCLAX
     Indication: B-CELL LYMPHOMA
     Dosage: MOST RECENT DOSE(400 MG) PRIOR TO AE ONSET WAS ON 16-OCT-2016
     Route: 048
     Dates: start: 20161010
  35. PREDNISONE. [Suspect]
     Active Substance: PREDNISONE
     Indication: B-CELL LYMPHOMA
     Dosage: MOST RECENT DOSE (100 MG )PRIOR TO AE ONSET WAS ON 11-OCT-2016
     Route: 048
     Dates: start: 20161007
  36. FORMOTEROLI FUMARATE DIHYDRIATE [Concomitant]
     Indication: ASTHMA
     Dates: start: 2010, end: 20161129
  37. GRANISETRON [Concomitant]
     Active Substance: GRANISETRON
     Dates: start: 20161004, end: 20161004
  38. CEFUROXIME AXETIL. [Concomitant]
     Active Substance: CEFUROXIME AXETIL
     Indication: INFECTION PROPHYLAXIS
     Dates: start: 20161014, end: 20161015
  39. FILGRASTIM [Concomitant]
     Active Substance: FILGRASTIM
     Dates: start: 20161021, end: 20161022
  40. GLYCEROLUM [Concomitant]
     Indication: CONSTIPATION
     Dates: start: 20161022, end: 20161022
  41. LACTULOSE. [Concomitant]
     Active Substance: LACTULOSE
     Indication: PROPHYLAXIS
     Dates: start: 20161008, end: 20161008
  42. ALPRAZOLAMUM [Concomitant]
     Indication: PROPHYLAXIS
     Dates: start: 20161012, end: 20161012
  43. CYCLOPHOSPHAMIDE. [Suspect]
     Active Substance: CYCLOPHOSPHAMIDE
     Indication: B-CELL LYMPHOMA
     Dosage: MOST RECENT DOSE (1470 MG )PRIOR TO AE ONSET WAS ON 08-OCT-2016 AT 1:15
     Route: 042
     Dates: start: 20161008
  44. OMEPRAZOLUM [Concomitant]
     Indication: PROPHYLAXIS
     Dates: start: 20161004, end: 20161109
  45. PARACETAMOLUM [Concomitant]
     Active Substance: ACETAMINOPHEN
     Indication: PREMEDICATION
     Dates: start: 20161010, end: 20161010
  46. BENZYDAMINE HYDROCHLORIDE [Concomitant]
     Active Substance: BENZYDAMINE HYDROCHLORIDE
     Indication: MUCOSAL INFLAMMATION
     Dates: start: 20161014, end: 20161101
  47. FILGRASTIM [Concomitant]
     Active Substance: FILGRASTIM
     Indication: NEUTROPENIA
     Dates: start: 20161014, end: 20161023
  48. LATANOPROSTUM [Concomitant]
     Indication: GLAUCOMA
  49. FUROSEMIDUM [Concomitant]
     Active Substance: FUROSEMIDE
     Indication: PROPHYLAXIS
     Dates: start: 20161006, end: 20161013
  50. FUROSEMIDUM [Concomitant]
     Active Substance: FUROSEMIDE
     Dates: start: 20161027, end: 20161030
  51. GRANISETRON [Concomitant]
     Active Substance: GRANISETRON
     Indication: PROPHYLAXIS OF NAUSEA AND VOMITING
     Dates: start: 20161011, end: 20161011
  52. FILGRASTIM [Concomitant]
     Active Substance: FILGRASTIM
     Dates: start: 20161023, end: 20161023
  53. ZOLPIDEM TARTRATE. [Concomitant]
     Active Substance: ZOLPIDEM TARTRATE
     Indication: PROPHYLAXIS
     Dates: start: 20161023, end: 20161023
  54. METAMIZOLUM NATRICUM [Concomitant]
     Dates: start: 20161024, end: 20161024

REACTIONS (1)
  - Cellulitis [Recovered/Resolved]

NARRATIVE: CASE EVENT DATE: 20161021
